FAERS Safety Report 17714276 (Version 4)
Quarter: 2024Q1

REPORT INFORMATION
  Report Type: Spontaneous
  Country: SK (occurrence: SK)
  Receive Date: 20200427
  Receipt Date: 20240331
  Transmission Date: 20240409
  Serious: Yes (Hospitalization, Other)
  Sender: FDA-Public Use
  Company Number: None

PATIENT
  Age: 44 Year
  Sex: Female

DRUGS (28)
  1. QUETIAPINE [Suspect]
     Active Substance: QUETIAPINE
     Indication: Psychotherapy
     Dosage: UNK
     Route: 065
  2. ARIPIPRAZOLE [Suspect]
     Active Substance: ARIPIPRAZOLE
     Indication: Psychotherapy
     Dosage: UNK
     Route: 065
  3. CARBAMAZEPINE [Suspect]
     Active Substance: CARBAMAZEPINE
     Indication: Affective disorder
     Dosage: UNK
     Route: 065
  4. DULOXETINE [Suspect]
     Active Substance: DULOXETINE
     Indication: Antidepressant therapy
     Dosage: UNK
     Route: 065
  5. AGOMELATINE [Suspect]
     Active Substance: AGOMELATINE
     Indication: Antidepressant therapy
     Dosage: UNK
     Route: 065
  6. VALPROATE [Suspect]
     Active Substance: VALPROIC ACID
     Indication: Affective disorder
     Dosage: UNK
     Route: 065
  7. TRAZODONE [Suspect]
     Active Substance: TRAZODONE HYDROCHLORIDE
     Indication: Antidepressant therapy
     Dosage: UNK
     Route: 065
  8. TIAPRIDE [Suspect]
     Active Substance: TIAPRIDE
     Indication: Psychotherapy
     Dosage: UNK
     Route: 065
  9. SERTRALINE [Suspect]
     Active Substance: SERTRALINE HYDROCHLORIDE
     Indication: Antidepressant therapy
     Dosage: UNK
     Route: 065
  10. BUPROPION [Suspect]
     Active Substance: BUPROPION
     Indication: Antidepressant therapy
     Dosage: UNK
     Route: 065
  11. RISPERIDONE [Suspect]
     Active Substance: RISPERIDONE
     Indication: Personality disorder
     Dosage: UNK, SMALL DOSE
     Route: 065
  12. RISPERIDONE [Suspect]
     Active Substance: RISPERIDONE
     Indication: Psychotherapy
  13. ALPRAZOLAM [Suspect]
     Active Substance: ALPRAZOLAM
     Indication: Anxiolytic therapy
     Dosage: UNK
     Route: 065
  14. FLUPENTIXOL [Suspect]
     Active Substance: FLUPENTIXOL
     Indication: Psychotherapy
     Dosage: UNK
     Route: 065
  15. LEVOMEPROMAZINE [Suspect]
     Active Substance: LEVOMEPROMAZINE
     Indication: Psychotherapy
     Dosage: UNK
     Route: 065
  16. MIANSERIN [Suspect]
     Active Substance: MIANSERIN
     Indication: Antidepressant therapy
     Dosage: UNK
     Route: 065
  17. FLUNITRAZEPAM [Suspect]
     Active Substance: FLUNITRAZEPAM
     Indication: Anxiolytic therapy
     Dosage: UNK
     Route: 065
  18. CLONAZEPAM [Suspect]
     Active Substance: CLONAZEPAM
     Indication: Anxiolytic therapy
     Dosage: UNK
     Route: 065
  19. AMISULPRIDE [Suspect]
     Active Substance: AMISULPRIDE
     Indication: Psychotherapy
     Dosage: UNK
     Route: 065
  20. AMITRIPTYLINE [Suspect]
     Active Substance: AMITRIPTYLINE
     Indication: Antidepressant therapy
     Dosage: UNK
     Route: 065
  21. CHLORPROTHIXENE [Suspect]
     Active Substance: CHLORPROTHIXENE
     Indication: Psychotherapy
     Dosage: UNK
     Route: 065
  22. ZIPRASIDONE [Suspect]
     Active Substance: ZIPRASIDONE
     Indication: Psychotherapy
     Dosage: UNK
     Route: 065
  23. BROMAZEPAM [Suspect]
     Active Substance: BROMAZEPAM
     Indication: Anxiolytic therapy
     Dosage: UNK
     Route: 065
  24. BUSPIRONE HYDROCHLORIDE [Suspect]
     Active Substance: BUSPIRONE HYDROCHLORIDE
     Indication: Anxiolytic therapy
     Dosage: UNK
     Route: 065
  25. LITHIUM [Suspect]
     Active Substance: LITHIUM
     Indication: Affective disorder
     Dosage: UNK
     Route: 065
  26. VENLAFAXINE [Suspect]
     Active Substance: VENLAFAXINE HYDROCHLORIDE
     Indication: Antidepressant therapy
     Dosage: UNK
     Route: 065
  27. MIRTAZAPINE [Suspect]
     Active Substance: MIRTAZAPINE
     Indication: Antidepressant therapy
     Dosage: UNK
     Route: 065
  28. CITALOPRAM [Suspect]
     Active Substance: CITALOPRAM\CITALOPRAM HYDROBROMIDE
     Indication: Antidepressant therapy
     Dosage: UNK
     Route: 065

REACTIONS (7)
  - Suicidal ideation [Recovering/Resolving]
  - Vertigo [Unknown]
  - Weight increased [Unknown]
  - Fatigue [Unknown]
  - Extrapyramidal disorder [Unknown]
  - Type 2 diabetes mellitus [Unknown]
  - Drug ineffective [Unknown]
